FAERS Safety Report 5490060-1 (Version None)
Quarter: 2007Q4

REPORT INFORMATION
  Report Type: 
  Country: None (occurrence: None)
  Receive Date: 20071018
  Receipt Date: 20071008
  Transmission Date: 20080405
  Serious: Yes (Other)
  Sender: FDA-Public Use
  Company Number: PT-ELI_LILLY_AND_COMPANY-PT200707004846

PATIENT
  Sex: Female

DRUGS (3)
  1. DULOXETINE HYDROCHLORIDE [Suspect]
     Indication: DEPRESSION
     Dosage: 60 MG, DAILY (1/D)
     Route: 048
     Dates: start: 20070322, end: 20070413
  2. CLONAZEPAM [Concomitant]
     Indication: EPILEPSY
     Dosage: 4 MG, DAILY (1/D)
     Route: 048
     Dates: start: 20051223
  3. CLONAZEPAM [Concomitant]
     Dosage: 1.5 MG, UNK

REACTIONS (1)
  - EPILEPSY [None]
